FAERS Safety Report 10248931 (Version 2)
Quarter: 2014Q2

REPORT INFORMATION
  Report Type: Spontaneous
  Country: SK (occurrence: SK)
  Receive Date: 20140620
  Receipt Date: 20140626
  Transmission Date: 20141212
  Serious: Yes (Life-Threatening, Hospitalization, Other)
  Sender: FDA-Public Use
  Company Number: SK-JNJFOC-20140609890

PATIENT
  Age: 75 Year
  Sex: Male

DRUGS (11)
  1. XARELTO [Suspect]
     Indication: CEREBROVASCULAR ACCIDENT PROPHYLAXIS
     Route: 048
     Dates: end: 20140406
  2. XARELTO [Suspect]
     Indication: ATRIAL FIBRILLATION
     Route: 048
     Dates: end: 20140406
  3. VESSEL DUE F [Interacting]
     Indication: CEREBROVASCULAR ACCIDENT PROPHYLAXIS
     Route: 065
  4. VESSEL DUE F [Interacting]
     Indication: ATRIAL FIBRILLATION
     Route: 065
  5. ENELBIN (NAFTIDROFLURYL) [Concomitant]
     Route: 065
  6. EUPHYLLINE [Concomitant]
     Dosage: 200 UNITS UNSPECIFIED
     Route: 065
  7. TELMISARTAN [Concomitant]
     Route: 065
  8. VEROSPIRON [Concomitant]
     Route: 065
  9. AMLODIPINE [Concomitant]
     Route: 065
  10. SEDACORON [Concomitant]
     Route: 065
  11. OMEPRAZOLE [Concomitant]
     Route: 065

REACTIONS (5)
  - Upper gastrointestinal haemorrhage [Recovered/Resolved]
  - Gastrointestinal telangiectasia [Recovered/Resolved]
  - Gastric haemorrhage [Recovered/Resolved]
  - Bronchopneumonia [Unknown]
  - Drug interaction [Unknown]
